FAERS Safety Report 7717350-3 (Version None)
Quarter: 2011Q3

REPORT INFORMATION
  Report Type: 
  Country: None (occurrence: None)
  Receive Date: 20110830
  Receipt Date: 20110823
  Transmission Date: 20111222
  Serious: Yes (Hospitalization)
  Sender: FDA-Public Use
  Company Number: US-JNJFOC-20091204379

PATIENT
  Sex: Female
  Weight: 64 kg

DRUGS (9)
  1. ACETAMINOPHEN [Concomitant]
     Indication: PREMEDICATION
  2. INFLIXIMAB [Suspect]
     Indication: INFLAMMATORY BOWEL DISEASE
     Dosage: INDUCTION DOSE OF WEEK 0, 2 AND 6
     Route: 042
     Dates: start: 20081027
  3. MESALAZINE (5-ASA) [Concomitant]
     Indication: ILL-DEFINED DISORDER
     Route: 048
  4. PREDNISONE [Concomitant]
     Indication: ILL-DEFINED DISORDER
  5. INFLIXIMAB [Suspect]
     Route: 042
     Dates: start: 20081113
  6. ANTIHISTAMINES [Concomitant]
     Indication: PREMEDICATION
  7. INFLIXIMAB [Suspect]
     Route: 042
     Dates: start: 20081211
  8. INFLIXIMAB [Suspect]
     Route: 042
     Dates: start: 20090209, end: 20090410
  9. AZATHIOPRINE [Suspect]
     Indication: PRODUCT USED FOR UNKNOWN INDICATION

REACTIONS (3)
  - HERPES VIRUS INFECTION [None]
  - PULMONARY OEDEMA [None]
  - LYMPHOPROLIFERATIVE DISORDER [None]
